FAERS Safety Report 8020080 (Version 5)
Quarter: 2013Q2

REPORT INFORMATION
  Report Type: Spontaneous
  Country: US (occurrence: US)
  Receive Date: 20110705
  Receipt Date: 20130517
  Transmission Date: 20140414
  Serious: Yes (Hospitalization, Other)
  Sender: FDA-Public Use
  Company Number: US-PFIZER INC-2011147544

PATIENT
  Age: 64 Year
  Sex: Female
  Weight: 74.83 kg

DRUGS (19)
  1. ZOLOFT [Suspect]
     Indication: DEPRESSION
     Dosage: 150 MG DAILY
     Route: 048
  2. ALDACTONE [Suspect]
     Indication: FLUID RETENTION
     Dosage: 50 MG, 2X/DAY
  3. XANAX [Suspect]
     Indication: GENERALISED ANXIETY DISORDER
     Dosage: 0.5 MG, 3X/DAY
  4. XANAX [Suspect]
     Dosage: 0.5 MG, 2X/DAY
  5. METFORMIN HCL [Suspect]
     Indication: TYPE 2 DIABETES MELLITUS
     Dosage: UNK
  6. PAXIL [Suspect]
     Dosage: UNK
  7. PROPAFENONE [Concomitant]
     Indication: ATRIAL FIBRILLATION
     Dosage: UNK
  8. COUMADIN [Concomitant]
     Dosage: UNK
  9. CARDIZEM CD [Concomitant]
     Indication: ARRHYTHMIA
     Dosage: 180 MG, 1X/DAY
  10. DIGOXIN [Concomitant]
     Dosage: 0.25 MG, 1X/DAY
  11. PREVACID [Concomitant]
     Dosage: 30 MG, 2X/DAY
  12. SYNTHROID [Concomitant]
     Indication: HYPOTHYROIDISM
     Dosage: UNK
  13. SINGULAIR [Concomitant]
     Dosage: UNK
  14. PRANDIN [Concomitant]
     Indication: DIABETES MELLITUS
     Dosage: UNK
  15. MORPHINE [Concomitant]
     Indication: MIGRAINE
     Dosage: UNK
  16. PROMETHAZINE [Concomitant]
     Dosage: 25 MG, UNK
  17. PROMETHAZINE SUPPOSITORIES [Concomitant]
     Dosage: 50 MG, UNK
  18. VICTOZA [Concomitant]
     Indication: TYPE 2 DIABETES MELLITUS
     Dosage: 1.2 MG DAILY
  19. BYETTA [Concomitant]
     Indication: TYPE 2 DIABETES MELLITUS
     Dosage: UNK

REACTIONS (10)
  - Heart rate increased [Unknown]
  - Cerebral haemorrhage [Unknown]
  - Blood glucose increased [Unknown]
  - Anaphylactic shock [Unknown]
  - Dissociation [Unknown]
  - Disorientation [Unknown]
  - Blood creatinine increased [Unknown]
  - Malaise [Unknown]
  - Myalgia [Unknown]
  - Intentional drug misuse [Unknown]
